FAERS Safety Report 18989724 (Version 5)
Quarter: 2021Q2

REPORT INFORMATION
  Report Type: Report from Study
  Country: JP (occurrence: JP)
  Receive Date: 20210309
  Receipt Date: 20210603
  Transmission Date: 20210717
  Serious: Yes (Hospitalization)
  Sender: FDA-Public Use
  Company Number: JP-EISAI MEDICAL RESEARCH-EC-2021-089026

PATIENT
  Age: 57 Year
  Sex: Female
  Weight: 49.4 kg

DRUGS (27)
  1. MAGNESIUM OXIDE. [Concomitant]
     Active Substance: MAGNESIUM OXIDE
     Dates: start: 20200626, end: 20210216
  2. TARLIGE [Concomitant]
     Active Substance: MIROGABALIN BESYLATE
     Dates: start: 20200806
  3. ACELIO [Concomitant]
     Active Substance: ACETAMINOPHEN
     Route: 041
     Dates: start: 20210224, end: 20210224
  4. BFLUID [Concomitant]
     Active Substance: AMINO ACIDS\DEXTROSE\ELECTROLYTES NOS\VITAMINS
     Route: 041
     Dates: start: 20210225, end: 20210225
  5. LENVATINIB [Suspect]
     Active Substance: LENVATINIB
     Indication: ENDOMETRIAL CANCER
     Dosage: START DOSE: 20 MILLIGRAM, DOSE FLUCTUATED
     Route: 048
     Dates: start: 20201101, end: 20210216
  6. PEMBROLIZUMAB. [Suspect]
     Active Substance: PEMBROLIZUMAB
     Indication: ENDOMETRIAL CANCER
     Route: 041
     Dates: start: 20191101, end: 20210121
  7. PEMBROLIZUMAB. [Suspect]
     Active Substance: PEMBROLIZUMAB
     Route: 041
     Dates: start: 20210209, end: 20210209
  8. BACILLUS SUBTILIS;ENTEROCOCCUS FAECALIS [Concomitant]
     Dates: start: 20190218, end: 20210301
  9. NERIPROCT [Concomitant]
     Active Substance: DIFLUCORTOLONE VALERATE\LIDOCAINE
     Dates: start: 20210119
  10. FEXOFENADINE HYDROCHLORIDE. [Concomitant]
     Active Substance: FEXOFENADINE HYDROCHLORIDE
     Dates: start: 20191226, end: 20210301
  11. CALONAL [Concomitant]
     Active Substance: ACETAMINOPHEN
     Dates: start: 20201201, end: 20210227
  12. TRAZODONE [Concomitant]
     Active Substance: TRAZODONE HYDROCHLORIDE
     Dates: start: 20210109, end: 20210227
  13. SYMPROIC [Concomitant]
     Active Substance: NALDEMEDINE
     Dates: start: 20191009, end: 20210227
  14. LINZESS [Concomitant]
     Active Substance: LINACLOTIDE
     Dates: start: 20201222
  15. WHITE SOFT PARAFFIN [Concomitant]
     Active Substance: PARAFFIN
     Dates: start: 20201228
  16. METHAPAIN [Concomitant]
     Active Substance: METHADONE HYDROCHLORIDE
     Dates: start: 20201201, end: 20210301
  17. GOOFICE [Concomitant]
     Active Substance: ELOBIXIBAT
     Dates: start: 20191227, end: 20210227
  18. SOLACET F [Concomitant]
     Active Substance: CALCIUM CHLORIDE\POTASSIUM CHLORIDE\SODIUM ACETATE\SODIUM CHLORIDE
     Route: 041
     Dates: start: 20210225, end: 20210225
  19. MAGMITT [Concomitant]
     Active Substance: MAGNESIUM OXIDE
     Dates: start: 20210226, end: 20210227
  20. LENVATINIB [Suspect]
     Active Substance: LENVATINIB
     Route: 048
     Dates: start: 20210217
  21. GASCON [Concomitant]
     Active Substance: DIMETHICONE
     Dates: start: 20210226, end: 20210227
  22. HIRUDOID SOFT [Concomitant]
     Active Substance: GLYCOSAMINOGLYCANS
     Dates: start: 20191102
  23. SOLACET D [Concomitant]
     Route: 041
     Dates: start: 20210225, end: 20210225
  24. DICLOFENAC SODIUM. [Suspect]
     Active Substance: DICLOFENAC SODIUM
     Indication: PAIN
     Dates: start: 20201210, end: 20210301
  25. THYRADIN?S [Concomitant]
     Active Substance: LEVOTHYROXINE
     Dates: start: 20200807, end: 20210415
  26. ZYPREXA [Concomitant]
     Active Substance: OLANZAPINE
     Dates: start: 20201114, end: 20210227
  27. NARUVEIN [Concomitant]
     Active Substance: HYDROMORPHONE HYDROCHLORIDE
     Dates: start: 20201217, end: 20210303

REACTIONS (1)
  - Gastrointestinal perforation [Recovered/Resolved]

NARRATIVE: CASE EVENT DATE: 20210227
